FAERS Safety Report 8328726-8 (Version None)
Quarter: 2012Q2

REPORT INFORMATION
  Report Type: 
  Country: None (occurrence: None)
  Receive Date: 20120502
  Receipt Date: 20120425
  Transmission Date: 20120825
  Serious: Yes (Hospitalization)
  Sender: FDA-Public Use
  Company Number: US-BAYER-2011-074816

PATIENT
  Age: 36 Year
  Sex: Female
  Weight: 117.91 kg

DRUGS (5)
  1. IBUPROFEN TABLETS [Concomitant]
     Dosage: UNK UNK, PRN
  2. YAZ [Suspect]
     Indication: CONTRACEPTION
     Dosage: UNK
     Dates: start: 20080301, end: 20090701
  3. SULFAMETHOXAZOLE AND TRIMETHOPRIM DOUBLE STRENGTH [Concomitant]
     Dosage: 800-160 TAB
     Dates: start: 20090710
  4. SINGULAIR [Concomitant]
     Dosage: 10 MG, PRN
  5. ALBUTEROL [Concomitant]
     Dosage: UNK UNK, PRN

REACTIONS (3)
  - PULMONARY EMBOLISM [None]
  - INJURY [None]
  - PAIN [None]
